FAERS Safety Report 6416979-2 (Version None)
Quarter: 2009Q4

REPORT INFORMATION
  Report Type: 
  Country: None (occurrence: None)
  Receive Date: 20091027
  Receipt Date: 20090310
  Transmission Date: 20100525
  Serious: No
  Sender: FDA-Public Use
  Company Number: US-ALLERGAN-0903256US

PATIENT
  Sex: Male

DRUGS (4)
  1. ALPHAGAN P [Suspect]
     Indication: GLAUCOMA
     Dosage: 1 GTT, QD
     Route: 047
  2. ALPHAGAN P [Suspect]
     Dosage: 1 GTT, TID
     Route: 047
  3. ALPHAGAN P [Suspect]
     Dosage: 1 GTT, QAM
     Route: 047
  4. LUMIGAN [Suspect]
     Indication: GLAUCOMA
     Dosage: 1 GTT, QHS
     Route: 047

REACTIONS (1)
  - DRY MOUTH [None]
